FAERS Safety Report 16094180 (Version 1)
Quarter: 2019Q1

REPORT INFORMATION
  Report Type: Spontaneous
  Country: US (occurrence: US)
  Receive Date: 20190320
  Receipt Date: 20190320
  Transmission Date: 20190418
  Serious: Yes (Life-Threatening, Hospitalization, Other)
  Sender: FDA-Public Use
  Company Number: US-AUROBINDO-AUR-APL-2019-014534

PATIENT
  Age: 42 Year
  Sex: Female

DRUGS (2)
  1. ALBUTEROL HFA [Concomitant]
     Active Substance: ALBUTEROL SULFATE
     Indication: ASTHMA
     Dosage: UNK
     Route: 065
  2. ALPRAZOLAM. [Suspect]
     Active Substance: ALPRAZOLAM
     Indication: PRODUCT USED FOR UNKNOWN INDICATION
     Dosage: UNK
     Route: 065

REACTIONS (8)
  - Bradycardia [Unknown]
  - Overdose [Unknown]
  - Dyspnoea [Recovering/Resolving]
  - Asthenia [Unknown]
  - Hypotension [Unknown]
  - Unresponsive to stimuli [Unknown]
  - Pulseless electrical activity [Recovered/Resolved]
  - Hypoxia [Recovering/Resolving]
